FAERS Safety Report 5420788-0 (Version None)
Quarter: 2007Q3

REPORT INFORMATION
  Report Type: 
  Country: None (occurrence: None)
  Receive Date: 20070816
  Receipt Date: 20070803
  Transmission Date: 20080115
  Serious: Yes (Hospitalization)
  Sender: FDA-Public Use
  Company Number: 2007EU000645

PATIENT
  Age: 50 Year
  Sex: Male
  Weight: 63 kg

DRUGS (2)
  1. TACROLIMUS [Suspect]
     Indication: RENAL TRANSPLANT
     Dosage: 7.5 MG, UNKNOWN/D, ORAL ; 7 MG, UNKNOWN/D, ORAL
     Route: 048
     Dates: start: 20070114
  2. EVEROLIMUS(EVEROLIMUS) [Suspect]
     Indication: RENAL TRANSPLANT
     Dosage: 1.5 MG, UNKNOWN/D, ORAL
     Route: 048
     Dates: start: 20070115

REACTIONS (6)
  - BENIGN PROSTATIC HYPERPLASIA [None]
  - KIDNEY TRANSPLANT REJECTION [None]
  - NEUROTOXICITY [None]
  - PYELONEPHRITIS [None]
  - RENAL FAILURE [None]
  - URINARY TRACT INFECTION [None]
